FAERS Safety Report 4456775-9 (Version None)
Quarter: 2004Q3

REPORT INFORMATION
  Report Type: 
  Country: None (occurrence: None)
  Receive Date: 20040921
  Receipt Date: 20040913
  Transmission Date: 20050211
  Serious: Yes (Death, Hospitalization, Other)
  Sender: FDA-Public Use
  Company Number: US-JNJFOC-20040903457

PATIENT
  Age: 67 Year
  Sex: Female

DRUGS (2)
  1. EXTRA STRENGTH TYLENOL [Suspect]
     Indication: INTENTIONAL MISUSE
     Dosage: 5000 MG, ORAL
     Route: 048
  2. AMITRIPTYLINE HCL [Concomitant]

REACTIONS (8)
  - CARDIAC ARREST [None]
  - DRUG SCREEN POSITIVE [None]
  - ELECTROCARDIOGRAM QRS COMPLEX PROLONGED [None]
  - EXTRASYSTOLES [None]
  - HEART RATE INCREASED [None]
  - HEPATIC NECROSIS [None]
  - INTERNATIONAL NORMALISED RATIO INCREASED [None]
  - OVERDOSE [None]
